FAERS Safety Report 6526006-4 (Version None)
Quarter: 2010Q1

REPORT INFORMATION
  Report Type: 
  Country: None (occurrence: None)
  Receive Date: 20100104
  Receipt Date: 20060120
  Transmission Date: 20100710
  Serious: Yes (Other)
  Sender: FDA-Public Use
  Company Number: US-BAXTER-2008BH010371

PATIENT
  Age: 60 Year
  Sex: Female

DRUGS (2)
  1. IMMUNE GLOBULIN INTRAVENOUS (HUMAN) [Suspect]
     Indication: ACQUIRED IMMUNODEFICIENCY SYNDROME
     Route: 042
  2. IMMUNE GLOBULIN INTRAVENOUS (HUMAN) [Suspect]
     Indication: SELECTIVE IGA IMMUNODEFICIENCY
     Route: 042

REACTIONS (3)
  - ADVERSE EVENT [None]
  - CHEST DISCOMFORT [None]
  - RESPIRATORY DISORDER [None]
